FAERS Safety Report 11398742 (Version 2)
Quarter: 2015Q4

REPORT INFORMATION
  Report Type: Spontaneous
  Country: US (occurrence: US)
  Receive Date: 20150820
  Receipt Date: 20151113
  Transmission Date: 20160304
  Serious: Yes (Other)
  Sender: FDA-Public Use
  Company Number: US-ASTRAZENECA-2015SE78209

PATIENT
  Sex: Female
  Weight: 93.9 kg

DRUGS (2)
  1. OMEPRAZOLE. [Suspect]
     Active Substance: OMEPRAZOLE
     Route: 048
  2. SYMBICORT [Suspect]
     Active Substance: BUDESONIDE\FORMOTEROL FUMARATE DIHYDRATE
     Indication: ASTHMA
     Dosage: 160/4.5 2 PUFFS TWICE A DAY
     Route: 055

REACTIONS (18)
  - Asthma [Unknown]
  - Nasal disorder [Unknown]
  - Off label use [Unknown]
  - Sleep apnoea syndrome [Unknown]
  - Glossodynia [Unknown]
  - Gastrooesophageal reflux disease [Unknown]
  - Blood glucose increased [Unknown]
  - Oropharyngeal discomfort [Unknown]
  - Erythema [Unknown]
  - Hypertension [Unknown]
  - Oral discomfort [Unknown]
  - Hepatic enzyme increased [Unknown]
  - Blood cholesterol increased [Unknown]
  - Breath sounds [Unknown]
  - Intervertebral disc degeneration [Unknown]
  - Weight decreased [Unknown]
  - Tongue geographic [Unknown]
  - Candida infection [Unknown]
